APPROVED DRUG PRODUCT: OXAZEPAM
Active Ingredient: OXAZEPAM
Strength: 30MG
Dosage Form/Route: CAPSULE;ORAL
Application: A070945 | Product #001
Applicant: IVAX PHARMACEUTICALS INC SUB TEVA PHARMACEUTICALS USA
Approved: Aug 3, 1987 | RLD: No | RS: No | Type: DISCN